FAERS Safety Report 21821592 (Version 13)
Quarter: 2024Q2

REPORT INFORMATION
  Report Type: Report from Study
  Country: US (occurrence: US)
  Receive Date: 20230105
  Receipt Date: 20240507
  Transmission Date: 20240716
  Serious: Yes (Other)
  Sender: FDA-Public Use
  Company Number: US-TAKEDA-2023TUS000900

PATIENT
  Age: 31 Year
  Sex: Male

DRUGS (4)
  1. RECOMBINATE [Suspect]
     Active Substance: ANTIHEMOPHILIC FACTOR, HUMAN RECOMBINANT
     Indication: Haemorrhage
     Dosage: 1800 INTERNATIONAL UNIT
     Route: 042
  2. RECOMBINATE [Suspect]
     Active Substance: ANTIHEMOPHILIC FACTOR, HUMAN RECOMBINANT
     Dosage: 1600 INTERNATIONAL UNIT
     Route: 050
  3. RECOMBINATE [Suspect]
     Active Substance: ANTIHEMOPHILIC FACTOR, HUMAN RECOMBINANT
     Dosage: 1480 INTERNATIONAL UNIT
     Route: 065
  4. HEMLIBRA [Suspect]
     Active Substance: EMICIZUMAB-KXWH
     Indication: Product used for unknown indication
     Dosage: UNK
     Route: 065

REACTIONS (14)
  - Haemorrhage [Not Recovered/Not Resolved]
  - Muscle haemorrhage [Recovered/Resolved]
  - Haemarthrosis [Not Recovered/Not Resolved]
  - Wound haemorrhage [Unknown]
  - Skin haemorrhage [Unknown]
  - Spontaneous haemorrhage [Recovered/Resolved]
  - Exostosis [Unknown]
  - Joint swelling [Unknown]
  - Limb injury [Recovering/Resolving]
  - Arthropathy [Unknown]
  - Acne [Unknown]
  - Arthritis [Recovering/Resolving]
  - Sleep disorder [Unknown]
  - Extra dose administered [Unknown]

NARRATIVE: CASE EVENT DATE: 20200430
